FAERS Safety Report 7103380-1 (Version None)
Quarter: 2010Q4

REPORT INFORMATION
  Report Type: 
  Country: None (occurrence: None)
  Receive Date: 20101115
  Receipt Date: 20101104
  Transmission Date: 20110411
  Serious: Yes (Other)
  Sender: FDA-Public Use
  Company Number: PHHY2010JP61645

PATIENT
  Sex: Female

DRUGS (8)
  1. ZOMETA [Suspect]
     Indication: METASTASES TO BONE
     Dosage: 4 MG, PER ADMINISTRATION
     Route: 041
     Dates: start: 20070629, end: 20100803
  2. FEMARA [Concomitant]
     Dosage: 1 MG, UNK
     Route: 048
     Dates: start: 20080104
  3. ONEALFA [Concomitant]
     Dosage: 2.5 MG, UNK
     Route: 048
     Dates: start: 20080201
  4. ASPARA-CA [Concomitant]
     Dosage: 1200 MG, UNK
     Route: 048
     Dates: start: 20080201
  5. LOXONIN [Concomitant]
     Dosage: 180 MG, UNK
     Route: 048
     Dates: start: 20080321
  6. BLOPRESS [Concomitant]
     Dosage: 8 MG, UNK
     Route: 048
     Dates: start: 20100409
  7. IRRIGATING SOLUTIONS [Concomitant]
     Dosage: UNK
  8. KLARICID [Concomitant]
     Dosage: UNK

REACTIONS (6)
  - FISTULA [None]
  - GINGIVAL HYPERPLASIA [None]
  - GINGIVAL SWELLING [None]
  - JAW DISORDER [None]
  - ORAL PUSTULE [None]
  - OSTEONECROSIS OF JAW [None]
